FAERS Safety Report 5083192-3 (Version None)
Quarter: 2006Q3

REPORT INFORMATION
  Report Type: 
  Country: None (occurrence: None)
  Receive Date: 20060724
  Receipt Date: 20031121
  Transmission Date: 20061208
  Serious: Yes (Hospitalization)
  Sender: FDA-Public Use
  Company Number: DRON00206001369

PATIENT
  Age: 48 Year
  Sex: Male

DRUGS (4)
  1. MARINOL [Suspect]
     Indication: MUSCLE SPASTICITY
     Dates: start: 20010810, end: 20020808
  2. BACLOFEN [Concomitant]
     Indication: MULTIPLE SCLEROSIS
  3. CO-AMILFRUSE [Concomitant]
  4. DIAZEPAM [Concomitant]

REACTIONS (1)
  - URINARY TRACT INFECTION [None]
